FAERS Safety Report 12383477 (Version 1)
Quarter: 2016Q2

REPORT INFORMATION
  Report Type: Spontaneous
  Country: GR (occurrence: GR)
  Receive Date: 20160518
  Receipt Date: 20160518
  Transmission Date: 20160815
  Serious: Yes (Life-Threatening, Hospitalization)
  Sender: FDA-Public Use
  Company Number: GR-DSJP-DSE-2016-116823

PATIENT

DRUGS (6)
  1. CARVEPEN [Suspect]
     Active Substance: CARVEDILOL
     Indication: HYPERTENSION
     Dosage: 6 TABLETS AT A TIME
     Dates: start: 20160510, end: 20160510
  2. LYRICA [Concomitant]
     Active Substance: PREGABALIN
     Indication: DEPRESSION
  3. LYRICA [Concomitant]
     Active Substance: PREGABALIN
     Indication: MENTAL DISORDER
  4. ORIZAL [Suspect]
     Active Substance: AMLODIPINE BESYLATE\OLMESARTAN MEDOXOMIL
     Dosage: UNK
     Route: 048
     Dates: end: 20160509
  5. ORIZAL [Suspect]
     Active Substance: AMLODIPINE BESYLATE\OLMESARTAN MEDOXOMIL
     Indication: HYPERTENSION
     Dosage: 26 TABLETS AT A TIME
     Route: 048
     Dates: start: 20160510, end: 20160510
  6. CARVEPEN [Suspect]
     Active Substance: CARVEDILOL
     Dosage: UNK
     Dates: end: 20160509

REACTIONS (3)
  - Hypotension [Recovering/Resolving]
  - Suicide attempt [Recovering/Resolving]
  - Drug abuse [Recovering/Resolving]

NARRATIVE: CASE EVENT DATE: 20160510
